FAERS Safety Report 5487676-5 (Version None)
Quarter: 2007Q4

REPORT INFORMATION
  Report Type: 
  Country: None (occurrence: None)
  Receive Date: 20071017
  Receipt Date: 20071009
  Transmission Date: 20080405
  Serious: Yes (Hospitalization)
  Sender: FDA-Public Use
  Company Number: PHBS2007GT16862

PATIENT
  Age: 61 Year
  Sex: Female

DRUGS (4)
  1. DIOVAN [Suspect]
     Indication: HYPERTENSION
     Dosage: 160 MG/DAY
     Route: 048
     Dates: start: 20040101, end: 20070929
  2. DIOVAN [Suspect]
     Dosage: 160 MG/12 HOURS
     Dates: start: 20070929
  3. CONCOR [Concomitant]
     Dosage: 5 MG/DAY
     Route: 048
  4. AMLODIPINE [Concomitant]
     Dosage: 5 MG/DAY
     Route: 048

REACTIONS (7)
  - APHASIA [None]
  - COMPUTERISED TOMOGRAM ABNORMAL [None]
  - CONVULSION [None]
  - HEMIPARESIS [None]
  - HYPERTENSION [None]
  - ISCHAEMIC STROKE [None]
  - TRANSIENT ISCHAEMIC ATTACK [None]
